FAERS Safety Report 15311013 (Version 2)
Quarter: 2018Q3

REPORT INFORMATION
  Report Type: Other
  Country: CA (occurrence: CA)
  Receive Date: 20180823
  Receipt Date: 20180831
  Transmission Date: 20181010
  Serious: Yes (Hospitalization, Other)
  Sender: FDA-Public Use
  Company Number: CA-PFIZER INC-2018337819

PATIENT
  Age: 71 Year
  Sex: Female

DRUGS (17)
  1. FUROSEMIDE. [Concomitant]
     Active Substance: FUROSEMIDE
     Dosage: 40.0 MG, 2X/DAY
     Route: 042
  2. ONDANSETRON [Concomitant]
     Active Substance: ONDANSETRON
     Dosage: 48.0 MG, AS NEEDED
  3. TYLENOL [Concomitant]
     Active Substance: ACETAMINOPHEN
     Dosage: UNK UNK, AS NEEDED
  4. BISOPROLOL [Interacting]
     Active Substance: BISOPROLOL
     Dosage: UNK
     Route: 065
  5. BUDESONIDE/FORMOTEROL FUMARATE [Concomitant]
     Dosage: UNK
  6. HALOPERIDOL. [Concomitant]
     Active Substance: HALOPERIDOL
     Dosage: 2.5 MG, 4X/DAY
  7. LEVOTHYROXINE SODIUM. [Concomitant]
     Active Substance: LEVOTHYROXINE SODIUM
     Dosage: 112.0 UG, 1X/DAY
  8. TELMISARTAN. [Concomitant]
     Active Substance: TELMISARTAN
     Dosage: 20.0 MG, 1X/DAY
  9. TELMISARTAN. [Concomitant]
     Active Substance: TELMISARTAN
     Dosage: UNK
  10. AMIODARONE HCL [Suspect]
     Active Substance: AMIODARONE HYDROCHLORIDE
     Dosage: UNK
     Route: 065
  11. ASPIRIN [ACETYLSALICYLIC ACID] [Concomitant]
     Active Substance: ASPIRIN
     Dosage: UNK
  12. LACTULOSE. [Concomitant]
     Active Substance: LACTULOSE
     Dosage: UNK
  13. LASIX [Concomitant]
     Active Substance: FUROSEMIDE
     Dosage: 40.0 MG, 2X/DAY
  14. PANTOPRAZOLE SODIUM. [Concomitant]
     Active Substance: PANTOPRAZOLE SODIUM
     Dosage: 40.0 MG, 2X/DAY
     Route: 048
  15. GRAVOL [Concomitant]
     Active Substance: DIMENHYDRINATE
     Dosage: UNK, AS NEEDED
  16. SPIRONOLACTONE. [Concomitant]
     Active Substance: SPIRONOLACTONE
     Dosage: 25.0 MG, 1X/DAY
  17. HARVONI [Interacting]
     Active Substance: LEDIPASVIR\SOFOSBUVIR
     Indication: HEPATITIS C
     Dosage: 1.0 DF, 1X/DAY
     Route: 048

REACTIONS (12)
  - Delirium [Unknown]
  - Atrioventricular block complete [Unknown]
  - Blood potassium increased [Unknown]
  - Hepatic function abnormal [Unknown]
  - Syncope [Unknown]
  - Atrial fibrillation [Unknown]
  - Hepatic encephalopathy [Unknown]
  - Drug interaction [Unknown]
  - Bradycardia [Unknown]
  - Cerebrovascular accident [Unknown]
  - Hypotension [Unknown]
  - Renal impairment [Unknown]
